FAERS Safety Report 4558005-6 (Version None)
Quarter: 2005Q1

REPORT INFORMATION
  Report Type: 
  Country: None (occurrence: None)
  Receive Date: 20050121
  Receipt Date: 20040428
  Transmission Date: 20050727
  Serious: Yes (Other)
  Sender: FDA-Public Use
  Company Number: US-BRISTOL-MYERS SQUIBB COMPANY-12574943

PATIENT
  Age: 14 Year
  Sex: Female
  Weight: 101 kg

DRUGS (4)
  1. SERZONE [Suspect]
     Indication: DEPRESSION
     Route: 048
  2. INH [Concomitant]
     Indication: TUBERCULIN TEST POSITIVE
     Dates: end: 20010110
  3. VITAMIN B COMPLEX CAP [Concomitant]
     Indication: TUBERCULIN TEST POSITIVE
     Dates: end: 20010110
  4. VIOXX [Concomitant]

REACTIONS (4)
  - ALANINE AMINOTRANSFERASE INCREASED [None]
  - ASPARTATE AMINOTRANSFERASE INCREASED [None]
  - BLOOD ALKALINE PHOSPHATASE INCREASED [None]
  - HEPATITIS B [None]
